FAERS Safety Report 7799567-5 (Version None)
Quarter: 2011Q4

REPORT INFORMATION
  Report Type: 
  Country: None (occurrence: None)
  Receive Date: 20111006
  Receipt Date: 20110926
  Transmission Date: 20120403
  Serious: Yes (Hospitalization, Other)
  Sender: FDA-Public Use
  Company Number: US-BAYER-201035810NA

PATIENT
  Age: 31 Year
  Sex: Female
  Weight: 97.506 kg

DRUGS (6)
  1. YASMIN [Suspect]
     Route: 048
     Dates: start: 20010101, end: 20060101
  2. ASCORBIC ACID [Concomitant]
  3. NSAID'S [Concomitant]
  4. ANTI-ASTHMATICS [Concomitant]
  5. ZOFRAN [Concomitant]
  6. ANTIBIOTICS [Concomitant]

REACTIONS (2)
  - GALLBLADDER DISORDER [None]
  - CHOLECYSTITIS CHRONIC [None]
